FAERS Safety Report 7231537-8 (Version None)
Quarter: 2011Q1

REPORT INFORMATION
  Report Type: 
  Country: None (occurrence: None)
  Receive Date: 20110118
  Receipt Date: 20110106
  Transmission Date: 20110831
  Serious: Yes (Death, Hospitalization, Other)
  Sender: FDA-Public Use
  Company Number: US-CELGENEUS-163-21880-10120288

PATIENT
  Sex: Male

DRUGS (6)
  1. MELPHALAN [Concomitant]
     Route: 065
  2. REVLIMID [Suspect]
     Indication: MULTIPLE MYELOMA
     Route: 048
     Dates: start: 20101110, end: 20101116
  3. ZOMETA [Concomitant]
     Route: 065
  4. BLOOD TRANSFUSION [Concomitant]
     Dosage: 2 PINTS A DAY FOR 3 DAYS
     Route: 065
     Dates: end: 20101116
  5. VELCADE [Concomitant]
     Route: 065
     Dates: start: 20090801
  6. HYDRATION [Concomitant]
     Route: 051

REACTIONS (4)
  - MULTIPLE MYELOMA [None]
  - THROMBOCYTOPENIA [None]
  - ANAEMIA [None]
  - RENAL IMPAIRMENT [None]
